FAERS Safety Report 4439338-0 (Version None)
Quarter: 2004Q3

REPORT INFORMATION
  Report Type: 
  Country: None (occurrence: None)
  Receive Date: 20040831
  Receipt Date: 20040824
  Transmission Date: 20050211
  Serious: Yes (Hospitalization)
  Sender: FDA-Public Use
  Company Number: CIP04001844

PATIENT
  Age: 63 Year
  Sex: Female

DRUGS (7)
  1. ASACOL [Suspect]
     Indication: COELIAC DISEASE
     Dosage: 1600 MG THREE TIMES DAILY, ORAL
     Route: 048
     Dates: start: 20040501, end: 20040814
  2. METFORMIN HCL [Concomitant]
  3. AVAPRO [Concomitant]
  4. OTHER ANTIHYPERTENSIVES [Concomitant]
  5. NORVASC /DEN/ (AMLODIPINE BESILATE) [Concomitant]
  6. DIURETICS [Concomitant]
  7. PROTONIX ^PHARMACIA^ (PANTOPRAZOLE) [Concomitant]

REACTIONS (8)
  - ANTINUCLEAR ANTIBODY POSITIVE [None]
  - DIFFICULTY IN WALKING [None]
  - HEPATITIS [None]
  - ILEUS [None]
  - LUPUS-LIKE SYNDROME [None]
  - NECK PAIN [None]
  - PAIN IN EXTREMITY [None]
  - RED BLOOD CELL SEDIMENTATION RATE INCREASED [None]
